FAERS Safety Report 4614339-8 (Version None)
Quarter: 2005Q1

REPORT INFORMATION
  Report Type: 
  Country: None (occurrence: None)
  Receive Date: 20050315
  Receipt Date: 20050301
  Transmission Date: 20050727
  Serious: Yes (Disabling, Other)
  Sender: FDA-Public Use
  Company Number: USA041184609

PATIENT
  Age: 62 Year
  Sex: Male

DRUGS (2)
  1. XIGRIS [Suspect]
     Indication: SEPSIS
     Dates: start: 20040801
  2. DAPTOMYCIN [Concomitant]

REACTIONS (13)
  - ABASIA [None]
  - ACTIVITIES OF DAILY LIVING IMPAIRED [None]
  - CARDIAC VALVE DISEASE [None]
  - DIFFICULTY IN WALKING [None]
  - DRUG TOXICITY [None]
  - IMPAIRED SELF-CARE [None]
  - MUSCLE ATROPHY [None]
  - MUSCLE TIGHTNESS [None]
  - MYOPATHY TOXIC [None]
  - RENAL DISORDER [None]
  - SKIN DISORDER [None]
  - SKIN FIBROSIS [None]
  - WHEELCHAIR USER [None]
